FAERS Safety Report 9626423 (Version 1)
Quarter: 2013Q4

REPORT INFORMATION
  Report Type: Spontaneous
  Country: GB (occurrence: None)
  Receive Date: 20131015
  Receipt Date: 20131015
  Transmission Date: 20140711
  Serious: Yes (Disabling)
  Sender: FDA-Public Use
  Company Number: None

PATIENT
  Age: 57 Year
  Sex: Male
  Weight: 70 kg

DRUGS (1)
  1. CIPROFLOXACIN [Suspect]
     Indication: PROSTATITIS
     Route: 048

REACTIONS (7)
  - Convulsion [None]
  - Paraesthesia [None]
  - Myalgia [None]
  - Asthenia [None]
  - Confusional state [None]
  - Feeling abnormal [None]
  - Screaming [None]
